FAERS Safety Report 9203987 (Version 1)
Quarter: 2013Q2

REPORT INFORMATION
  Report Type: Spontaneous
  Country: US (occurrence: US)
  Receive Date: 20130402
  Receipt Date: 20130402
  Transmission Date: 20140414
  Serious: Yes (Other)
  Sender: FDA-Public Use
  Company Number: US-JNJFOC-20130214150

PATIENT
  Sex: Female
  Weight: 96.62 kg

DRUGS (2)
  1. XARELTO [Suspect]
     Indication: CEREBROVASCULAR ACCIDENT PROPHYLAXIS
     Dosage: AM
     Route: 048
  2. XARELTO [Suspect]
     Indication: ATRIAL FIBRILLATION
     Dosage: AM
     Route: 048

REACTIONS (3)
  - Haematuria [Recovered/Resolved]
  - Inappropriate schedule of drug administration [Unknown]
  - International normalised ratio increased [Unknown]
